FAERS Safety Report 9067023 (Version 2)
Quarter: 2014Q2

REPORT INFORMATION
  Report Type: Spontaneous
  Country: US (occurrence: US)
  Receive Date: 20130214
  Receipt Date: 20140610
  Transmission Date: 20141212
  Serious: Yes (Hospitalization, Other)
  Sender: FDA-Public Use
  Company Number: US-BAYER-2013-017212

PATIENT
  Age: 47 Year
  Sex: Female
  Weight: 107.48 kg

DRUGS (9)
  1. YASMIN [Suspect]
     Dosage: UNK
     Dates: start: 2005, end: 2006
  2. YAZ [Suspect]
     Dosage: UNK
     Dates: start: 2005, end: 2006
  3. OCELLA [Suspect]
     Dosage: UNK
     Dates: start: 2005, end: 2006
  4. PREDNISONE [Concomitant]
  5. AMOXIL [Concomitant]
     Indication: DYSPHONIA
  6. AMOXIL [Concomitant]
     Indication: COUGH
  7. CYMBALTA [Concomitant]
  8. VICODIN ES [Concomitant]
     Dosage: UNK UNK, HS
  9. IBUPROFEN [Concomitant]

REACTIONS (10)
  - Deep vein thrombosis [None]
  - Thrombosis [None]
  - Peripheral arterial occlusive disease [None]
  - Iliac artery occlusion [None]
  - Abdominal pain [None]
  - Injury [None]
  - General physical health deterioration [None]
  - Anxiety [None]
  - Pain [None]
  - Emotional distress [None]
